FAERS Safety Report 12865720 (Version 4)
Quarter: 2017Q2

REPORT INFORMATION
  Report Type: Spontaneous
  Country: US (occurrence: US)
  Receive Date: 20161020
  Receipt Date: 20170411
  Transmission Date: 20170830
  Serious: Yes (Hospitalization, Other)
  Sender: FDA-Public Use
  Company Number: US-PFIZER INC-2016477971

PATIENT
  Age: 90 Year
  Sex: Female
  Weight: 53.52 kg

DRUGS (2)
  1. FEMARA [Concomitant]
     Active Substance: LETROZOLE
     Indication: NEOPLASM MALIGNANT
     Dosage: 2.5 MG, DAILY
     Route: 048
     Dates: start: 201605
  2. IBRANCE [Suspect]
     Active Substance: PALBOCICLIB
     Indication: BREAST CANCER METASTATIC
     Dosage: 125 MG, CYCLIC [DAILY FOR 21 DAYS ON 28 D CYCLE]
     Route: 048
     Dates: start: 201605

REACTIONS (4)
  - Neutropenia [Unknown]
  - Platelet count decreased [Recovered/Resolved]
  - Urinary tract infection [Not Recovered/Not Resolved]
  - White blood cell count decreased [Recovered/Resolved]

NARRATIVE: CASE EVENT DATE: 20160929
